FAERS Safety Report 4941901-5 (Version None)
Quarter: 2006Q1

REPORT INFORMATION
  Report Type: 
  Country: None (occurrence: None)
  Receive Date: 20060313
  Receipt Date: 20060126
  Transmission Date: 20060701
  Serious: Yes (Life-Threatening)
  Sender: FDA-Public Use
  Company Number: US-MERCK-0601USA03231

PATIENT
  Age: 57 Year
  Sex: Female
  Weight: 55 kg

DRUGS (4)
  1. FOSAMAX [Suspect]
     Indication: OSTEOPENIA
     Route: 048
     Dates: start: 20051001, end: 20060120
  2. LEVOXYL [Concomitant]
     Route: 065
     Dates: start: 20010101
  3. PROZAC [Concomitant]
     Route: 065
     Dates: start: 20050701
  4. RESTASIS [Concomitant]
     Route: 047
     Dates: start: 20050701

REACTIONS (4)
  - BILIARY DILATATION [None]
  - MUSCULOSKELETAL CHEST PAIN [None]
  - PANCREATIC ENLARGEMENT [None]
  - RESPIRATORY TRACT INFECTION [None]
